FAERS Safety Report 5490647-6 (Version None)
Quarter: 2007Q4

REPORT INFORMATION
  Report Type: 
  Country: None (occurrence: None)
  Receive Date: 20071019
  Receipt Date: 20070921
  Transmission Date: 20080405
  Serious: Yes (Hospitalization)
  Sender: FDA-Public Use
  Company Number: FR-BRISTOL-MYERS SQUIBB COMPANY-13945340

PATIENT
  Age: 6 Year
  Sex: Female

DRUGS (4)
  1. HOLOXAN [Suspect]
     Indication: BONE SARCOMA
     Dosage: COURSE 1 CHEMOTHERAPY: 02-JUL-2007 TO 05-JUL-2007.
     Route: 042
     Dates: start: 20070808, end: 20070809
  2. ETOPOPHOS [Concomitant]
     Route: 042
     Dates: start: 20070808, end: 20070811
  3. ZOFRAN [Concomitant]
     Dates: start: 20070808, end: 20070811
  4. UROMITEXAN [Concomitant]
     Dates: start: 20070808, end: 20070811

REACTIONS (3)
  - OXYGEN SATURATION DECREASED [None]
  - PETIT MAL EPILEPSY [None]
  - SALIVARY HYPERSECRETION [None]
